FAERS Safety Report 12955707 (Version 1)
Quarter: 2016Q4

REPORT INFORMATION
  Report Type: Spontaneous
  Country: US (occurrence: US)
  Receive Date: 20161118
  Receipt Date: 20161118
  Transmission Date: 20170207
  Serious: Yes (Hospitalization, Other)
  Sender: FDA-Public Use
  Company Number: US-PINNACLE BIOLOGICS INC-PIN-2016-00053

PATIENT
  Age: 51 Year
  Sex: Male

DRUGS (5)
  1. CARBOPLATIN. [Concomitant]
     Active Substance: CARBOPLATIN
     Indication: LUNG NEOPLASM MALIGNANT
  2. PHOTOFRIN [Suspect]
     Active Substance: PORFIMER SODIUM
     Indication: LUNG NEOPLASM MALIGNANT
     Route: 065
  3. AVASTIN [Concomitant]
     Active Substance: BEVACIZUMAB
     Indication: LUNG NEOPLASM MALIGNANT
  4. PEMETREXED [Concomitant]
     Active Substance: PEMETREXED
     Indication: LUNG NEOPLASM MALIGNANT
  5. PHOTOFRIN [Suspect]
     Active Substance: PORFIMER SODIUM
     Indication: LUNG NEOPLASM MALIGNANT

REACTIONS (5)
  - Thrombosis [Unknown]
  - Pneumonia staphylococcal [Unknown]
  - Chest pain [Unknown]
  - Pericardial effusion [Unknown]
  - Cough [Unknown]

NARRATIVE: CASE EVENT DATE: 20161020
